FAERS Safety Report 10852328 (Version 1)
Quarter: 2015Q1

REPORT INFORMATION
  Report Type: Spontaneous
  Country: US (occurrence: US)
  Receive Date: 20150222
  Receipt Date: 20150222
  Transmission Date: 20150721
  Serious: Yes (Other)
  Sender: FDA-Public Use
  Company Number: US-ALLERGAN-1425528US

PATIENT
  Age: 45 Year
  Sex: Female

DRUGS (2)
  1. BOTOX [Suspect]
     Active Substance: ONABOTULINUMTOXINA
     Indication: MIGRAINE
     Dosage: UNK, SINGLE
     Dates: start: 201409, end: 201409
  2. BOTOX [Suspect]
     Active Substance: ONABOTULINUMTOXINA
     Indication: TRIGEMINAL NEURALGIA

REACTIONS (4)
  - Dysarthria [Unknown]
  - Muscular weakness [Unknown]
  - Off label use [Unknown]
  - Facial paresis [Unknown]

NARRATIVE: CASE EVENT DATE: 201409
